FAERS Safety Report 6291503-6 (Version None)
Quarter: 2009Q3

REPORT INFORMATION
  Report Type: 
  Country: None (occurrence: None)
  Receive Date: 20090729
  Receipt Date: 20090729
  Transmission Date: 20100115
  Serious: No
  Sender: FDA-Public Use
  Company Number: None

PATIENT
  Age: 88 Year

DRUGS (1)
  1. PRILOSEC [Suspect]
     Dates: start: 20080922

REACTIONS (1)
  - GYNAECOMASTIA [None]
